FAERS Safety Report 4988299-4 (Version None)
Quarter: 2006Q2

REPORT INFORMATION
  Report Type: 
  Country: None (occurrence: None)
  Receive Date: 20060425
  Receipt Date: 20060414
  Transmission Date: 20061013
  Serious: Yes (Other)
  Sender: FDA-Public Use
  Company Number: 2006040444

PATIENT
  Age: 47 Year
  Sex: Male

DRUGS (3)
  1. LIPITOR [Suspect]
     Indication: HYPERCHOLESTEROLAEMIA
     Dosage: (40 MG), ORAL
     Route: 048
     Dates: start: 19991010
  2. EZETIMIBE [Concomitant]
  3. EZETROL (EZETIMIBE) [Concomitant]

REACTIONS (4)
  - CATARACT [None]
  - MUSCLE RUPTURE [None]
  - RETINAL DETACHMENT [None]
  - TENDON RUPTURE [None]
